FAERS Safety Report 10674904 (Version 1)
Quarter: 2014Q4

REPORT INFORMATION
  Report Type: Spontaneous
  Country: US (occurrence: US)
  Receive Date: 20141224
  Receipt Date: 20141224
  Transmission Date: 20150529
  Serious: No
  Sender: FDA-Public Use
  Company Number: US-GLAXOSMITHKLINE-A1065152A

PATIENT

DRUGS (2)
  1. FLUTICASONE PROPIONATE NASAL SPRAY [Suspect]
     Active Substance: FLUTICASONE PROPIONATE
     Indication: MULTIPLE ALLERGIES
     Route: 045
     Dates: start: 2012, end: 2012
  2. HORMONE REPLACEMENT THERAPY [Concomitant]
     Active Substance: UNSPECIFIED INGREDIENT

REACTIONS (5)
  - Nasal discomfort [Not Recovered/Not Resolved]
  - Drug ineffective [Unknown]
  - Nasal pruritus [Unknown]
  - Ill-defined disorder [Unknown]
  - Ear discomfort [Unknown]

NARRATIVE: CASE EVENT DATE: 2012
